FAERS Safety Report 18988004 (Version 1)
Quarter: 2021Q1

REPORT INFORMATION
  Report Type: Spontaneous
  Country: US (occurrence: US)
  Receive Date: 20210309
  Receipt Date: 20210309
  Transmission Date: 20210420
  Serious: No
  Sender: FDA-Public Use
  Company Number: US-SA-2021SA079328

PATIENT
  Age: 53 Year
  Sex: Female
  Weight: 72.56 kg

DRUGS (4)
  1. STERILE WATER [Concomitant]
     Active Substance: WATER
  2. EPINEPHRINE. [Concomitant]
     Active Substance: EPINEPHRINE
  3. CEREZYME [Suspect]
     Active Substance: IMIGLUCERASE
     Indication: FABRY^S DISEASE
     Dosage: 3600 IU, QOW
     Route: 042
     Dates: start: 20040831
  4. NORMAL SALINE [Concomitant]
     Active Substance: SODIUM CHLORIDE

REACTIONS (1)
  - Dizziness [Unknown]

NARRATIVE: CASE EVENT DATE: 202102
